FAERS Safety Report 7995823-6 (Version None)
Quarter: 2011Q4

REPORT INFORMATION
  Report Type: 
  Country: None (occurrence: None)
  Receive Date: 20111220
  Receipt Date: 20111213
  Transmission Date: 20120403
  Serious: No
  Sender: FDA-Public Use
  Company Number: US-JNJFOC-20111207124

PATIENT
  Sex: Female
  Weight: 53.52 kg

DRUGS (12)
  1. ASPIRIN [Concomitant]
     Route: 048
     Dates: start: 20111207
  2. VITAMIN B-12 [Concomitant]
     Indication: NUTRITIONAL SUPPORT
     Route: 048
  3. UNSPECIFID FENTANYL TRANSDERMAL SYSTEM [Suspect]
     Indication: SPINAL FRACTURE
     Route: 062
     Dates: start: 20110520, end: 20110101
  4. FENTANYL CITRATE [Suspect]
     Indication: SPINAL FRACTURE
     Route: 062
     Dates: start: 20110101, end: 20111201
  5. CARTIA XT [Concomitant]
     Indication: MYOCARDIAL INFARCTION
     Route: 048
  6. PROAIR HFA [Concomitant]
     Indication: ASTHMA
     Route: 055
     Dates: start: 19920101, end: 20111201
  7. ASPIRIN [Concomitant]
     Indication: MYOCARDIAL INFARCTION
     Route: 048
     Dates: end: 20111206
  8. PROAIR HFA [Concomitant]
     Dosage: ONE PUFF IN AM AND ONE PUFF IN PM
     Route: 055
     Dates: start: 20111201
  9. UNSPECIFID FENTANYL TRANSDERMAL SYSTEM [Suspect]
     Indication: RIB FRACTURE
     Route: 062
     Dates: start: 20110520, end: 20110101
  10. FENTANYL CITRATE [Suspect]
     Indication: RIB FRACTURE
     Route: 062
     Dates: start: 20110101, end: 20111201
  11. FENTANYL-100 [Suspect]
     Indication: SPINAL FRACTURE
     Dosage: NDC NUMBER: 0781-7240-55
     Route: 062
     Dates: start: 20111211
  12. FENTANYL-100 [Suspect]
     Indication: RIB FRACTURE
     Dosage: NDC NUMBER: 0781-7240-55
     Route: 062
     Dates: start: 20111211

REACTIONS (14)
  - APPLICATION SITE MASS [None]
  - APPLICATION SITE DRYNESS [None]
  - APPLICATION SITE REACTION [None]
  - HYPERSENSITIVITY [None]
  - THERAPEUTIC RESPONSE INCREASED [None]
  - PRODUCT PHYSICAL ISSUE [None]
  - WOUND HAEMORRHAGE [None]
  - LACERATION [None]
  - WRONG TECHNIQUE IN DRUG USAGE PROCESS [None]
  - BLOOD BLISTER [None]
  - ABDOMINAL PAIN [None]
  - CHEST PAIN [None]
  - PRODUCT OUTER PACKAGING ISSUE [None]
  - PRODUCT QUALITY ISSUE [None]
